FAERS Safety Report 18183827 (Version 3)
Quarter: 2022Q4

REPORT INFORMATION
  Report Type: Spontaneous
  Country: DE (occurrence: DE)
  Receive Date: 20200823
  Receipt Date: 20221019
  Transmission Date: 20230113
  Serious: Yes (Hospitalization, Other)
  Sender: FDA-Public Use
  Company Number: None

PATIENT
  Age: 86 Year
  Sex: Male
  Weight: 86 kg

DRUGS (14)
  1. BICALUTAMIDE [Suspect]
     Active Substance: BICALUTAMIDE
     Indication: Product used for unknown indication
     Dosage: 1-0-0-0
     Route: 048
  2. CANDESARTAN [Interacting]
     Active Substance: CANDESARTAN
     Indication: Product used for unknown indication
     Dosage: 4 MG, 1-0-0-0
     Route: 048
  3. NEBIVOLOL [Interacting]
     Active Substance: NEBIVOLOL
     Indication: Product used for unknown indication
     Dosage: 1-0-0-0
     Route: 048
  4. PENTAERYTHRITOL TETRANITRATE [Interacting]
     Active Substance: PENTAERYTHRITOL TETRANITRATE
     Indication: Product used for unknown indication
     Dosage: 50 MG, 1-0-1-0
     Route: 048
  5. TORSEMIDE [Interacting]
     Active Substance: TORSEMIDE
     Indication: Product used for unknown indication
     Dosage: 0.5-0-0-0
     Route: 048
  6. ASPIRIN [Concomitant]
     Active Substance: ASPIRIN
     Indication: Product used for unknown indication
     Dosage: 100 MG, 1-0-0-0
     Route: 048
  7. ATORVASTATIN [Concomitant]
     Active Substance: ATORVASTATIN
     Indication: Product used for unknown indication
     Dosage: 20 MG, 0.5-0-0-0
     Route: 048
  8. BECLOMETHASONE DIPROPIONATE [Concomitant]
     Active Substance: BECLOMETHASONE DIPROPIONATE
     Indication: Product used for unknown indication
     Dosage: 250 G, 1-0-0-0
     Route: 055
  9. BISACODYL [Concomitant]
     Active Substance: BISACODYL
     Indication: Product used for unknown indication
     Dosage: 5 MG, 1-0-0-0
     Route: 065
  10. FENOTEROL [Concomitant]
     Active Substance: FENOTEROL
     Indication: Product used for unknown indication
     Dosage: 100 G, REQUIREMENT
     Route: 055
  11. Levothyroxin-sodium [Concomitant]
     Indication: Product used for unknown indication
     Dosage: 150 G, 1-0-0-0
     Route: 048
  12. MAGNESIUM [Concomitant]
     Active Substance: MAGNESIUM
     Indication: Product used for unknown indication
     Dosage: 250 MG, 1-0-0-0
     Route: 048
  13. MIRABEGRON [Concomitant]
     Active Substance: MIRABEGRON
     Indication: Product used for unknown indication
     Dosage: 50 MG, 1-0-0-0
     Route: 048
  14. TAMSULOSIN [Concomitant]
     Active Substance: TAMSULOSIN
     Indication: Product used for unknown indication
     Dosage: 0.4 MG, 1-0-0-0
     Route: 048

REACTIONS (5)
  - Syncope [Unknown]
  - Labelled drug-drug interaction medication error [Unknown]
  - Product monitoring error [Unknown]
  - Electrocardiogram QT prolonged [Unknown]
  - Dehydration [Unknown]

NARRATIVE: CASE EVENT DATE: 20190727
